FAERS Safety Report 22394554 (Version 1)
Quarter: 2023Q2

REPORT INFORMATION
  Report Type: Spontaneous
  Country: US (occurrence: None)
  Receive Date: 20230531
  Receipt Date: 20230531
  Transmission Date: 20230722
  Serious: Yes (unspecified)
  Sender: FDA-Public Use
  Company Number: None

PATIENT
  Age: 19 Year
  Sex: Female
  Weight: 60 kg

DRUGS (1)
  1. STELARA [Suspect]
     Active Substance: USTEKINUMAB
     Dosage: OTHER FREQUENCY : ONCE;?
     Route: 042
     Dates: start: 20230531, end: 20230531

REACTIONS (5)
  - Infusion related reaction [None]
  - Fall [None]
  - Speech disorder [None]
  - Cold sweat [None]
  - Feeling abnormal [None]

NARRATIVE: CASE EVENT DATE: 20230531
